FAERS Safety Report 11908680 (Version 1)
Quarter: 2016Q1

REPORT INFORMATION
  Report Type: Spontaneous
  Country: US (occurrence: US)
  Receive Date: 20160111
  Receipt Date: 20160111
  Transmission Date: 20160526
  Serious: No
  Sender: FDA-Public Use
  Company Number: US-009507513-1601USA002248

PATIENT
  Sex: Male

DRUGS (1)
  1. JANUVIA [Suspect]
     Active Substance: SITAGLIPTIN PHOSPHATE
     Indication: TYPE 2 DIABETES MELLITUS
     Dosage: STRENGTH: 100 MG, 1 STANDARD PACKAGE BOTTLE OF 30
     Route: 048
     Dates: start: 2015

REACTIONS (5)
  - Eructation [Unknown]
  - Flatulence [Unknown]
  - Dysgeusia [Unknown]
  - Dyspepsia [Unknown]
  - Abdominal distension [Unknown]
